FAERS Safety Report 23934152 (Version 1)
Quarter: 2024Q2

REPORT INFORMATION
  Report Type: Report from Study
  Country: FR (occurrence: FR)
  Receive Date: 20240603
  Receipt Date: 20240603
  Transmission Date: 20240716
  Serious: No
  Sender: FDA-Public Use
  Company Number: FR-SANDOZ-SDZ2024FR054044

PATIENT
  Age: 10 Year
  Sex: Male

DRUGS (1)
  1. OMNITROPE [Suspect]
     Active Substance: SOMATROPIN
     Indication: Product used for unknown indication
     Dosage: 1.5 MG/D 6D/7(15)
     Route: 058
     Dates: start: 20240522

REACTIONS (5)
  - Injection site pain [Unknown]
  - Anxiety [Unknown]
  - Incorrect dose administered [Unknown]
  - Product storage error [Unknown]
  - Device occlusion [Unknown]
